FAERS Safety Report 15473382 (Version 1)
Quarter: 2018Q4

REPORT INFORMATION
  Report Type: Spontaneous
  Country: IE (occurrence: IE)
  Receive Date: 20181008
  Receipt Date: 20181008
  Transmission Date: 20190205
  Serious: Yes (Hospitalization)
  Sender: FDA-Public Use
  Company Number: IE-TEVA-2018-IE-960978

PATIENT
  Age: 65 Year
  Sex: Female
  Weight: 66.3 kg

DRUGS (10)
  1. THYMINE [Concomitant]
     Active Substance: THYMINE
     Dates: start: 201807
  2. CENTRUM [Concomitant]
     Active Substance: VITAMINS
     Dates: start: 201807
  3. OXYNORM [Concomitant]
     Active Substance: OXYCODONE HYDROCHLORIDE
  4. ELTROXIN [Concomitant]
     Active Substance: LEVOTHYROXINE
     Dates: start: 1990
  5. SENNA [Concomitant]
     Active Substance: SENNA LEAF\SENNOSIDES\SENNOSIDES A AND B
  6. HYDROCORTISONE. [Suspect]
     Active Substance: HYDROCORTISONE
     Indication: ADDISON^S DISEASE
     Dosage: 180 MILLIGRAM DAILY;
     Route: 048
     Dates: start: 201807
  7. AVELUMAB [Suspect]
     Active Substance: AVELUMAB
     Indication: OVARIAN CANCER
     Route: 042
     Dates: start: 20180212, end: 20180605
  8. METOCLOPRAMIDE. [Concomitant]
     Active Substance: METOCLOPRAMIDE
  9. FLUDROCORTISONE [Suspect]
     Active Substance: FLUDROCORTISONE
     Indication: ADDISON^S DISEASE
     Dosage: 2 MILLIGRAM DAILY;
     Route: 048
     Dates: start: 201807
  10. NEXIUM [Concomitant]
     Active Substance: ESOMEPRAZOLE MAGNESIUM
     Dates: start: 1997

REACTIONS (1)
  - Cushingoid [Recovered/Resolved]

NARRATIVE: CASE EVENT DATE: 20180811
